FAERS Safety Report 7083628-2 (Version None)
Quarter: 2010Q4

REPORT INFORMATION
  Report Type: 
  Country: None (occurrence: None)
  Receive Date: 20101104
  Receipt Date: 20101028
  Transmission Date: 20110411
  Serious: Yes (Other)
  Sender: FDA-Public Use
  Company Number: CHPA2010US17039

PATIENT
  Age: 50 Year
  Sex: Female

DRUGS (2)
  1. PRIVATE LABEL STRENGTH UNKNOWN (NCH) [Suspect]
     Indication: SMOKING CESSATION THERAPY
     Dosage: UNK, 1 PATCH ONCE A DAY
     Route: 062
  2. ENALAPRIL MALEATE [Concomitant]
     Indication: HYPERTENSION
     Route: 048

REACTIONS (1)
  - BIOPSY LIVER [None]
